FAERS Safety Report 5826334-1 (Version None)
Quarter: 2008Q3

REPORT INFORMATION
  Report Type: 
  Country: None (occurrence: None)
  Receive Date: 20080724
  Receipt Date: 20080709
  Transmission Date: 20090109
  Serious: Yes (Hospitalization)
  Sender: FDA-Public Use
  Company Number: 88502

PATIENT
  Age: 55 Year
  Sex: Female
  Weight: 75 kg

DRUGS (4)
  1. IBUPROFEN TABLETS [Suspect]
     Indication: ARTHRITIS
     Dosage: 400MG/2/DAYS/ORAL
     Route: 048
     Dates: start: 19980101, end: 20080530
  2. IBUPROFEN TABLETS [Suspect]
     Indication: TOOTH DISORDER
     Dosage: 400MG/2/DAYS/ORAL
     Route: 048
     Dates: start: 19980101, end: 20080530
  3. FLUOXETINE [Suspect]
     Dosage: 20MG/1/DAYS/ORAL
     Route: 048
     Dates: start: 20080301, end: 20080531
  4. CETIRIZINE HCL [Concomitant]

REACTIONS (1)
  - UPPER GASTROINTESTINAL HAEMORRHAGE [None]
